FAERS Safety Report 23872124 (Version 1)
Quarter: 2024Q2

REPORT INFORMATION
  Report Type: Report from Study
  Country: US (occurrence: US)
  Receive Date: 20240520
  Receipt Date: 20240520
  Transmission Date: 20240716
  Serious: No
  Sender: FDA-Public Use
  Company Number: US-ACADIA PHARMACEUTICALS INC.-ACA-2024-PIM-002105

PATIENT
  Age: 43 Year
  Sex: Female

DRUGS (17)
  1. NUPLAZID [Suspect]
     Active Substance: PIMAVANSERIN TARTRATE
     Indication: Psychotic disorder
     Dosage: 34 MILLIGRAM, QD
     Route: 048
     Dates: start: 20240413
  2. AIMOVIG [Concomitant]
     Active Substance: ERENUMAB-AOOE
  3. BENZONATATE [Concomitant]
     Active Substance: BENZONATATE
  4. BUTALBITAL, ACETAMINOPHEN, AND CAFFEINE [Concomitant]
     Active Substance: ACETAMINOPHEN\BUTALBITAL\CAFFEINE
  5. CITALOPRAM [Concomitant]
     Active Substance: CITALOPRAM\CITALOPRAM HYDROBROMIDE
  6. CLONAZEPAM [Concomitant]
     Active Substance: CLONAZEPAM
  7. CYCLOBENZAPRINE [Concomitant]
     Active Substance: CYCLOBENZAPRINE
  8. DEXAMETHASONE [Concomitant]
     Active Substance: DEXAMETHASONE
  9. EMGALITY [Concomitant]
     Active Substance: GALCANEZUMAB-GNLM
  10. NARATRIPTAN [Concomitant]
     Active Substance: NARATRIPTAN HYDROCHLORIDE
  11. KETOROLAC [Concomitant]
     Active Substance: KETOROLAC TROMETHAMINE
  12. OLANZAPINE [Concomitant]
     Active Substance: OLANZAPINE
  13. OMEPRAZOLE [Concomitant]
     Active Substance: DONEPEZIL HYDROCHLORIDE\OMEPRAZOLE\OMEPRAZOLE MAGNESIUM
  14. ONDANSETRON [Concomitant]
     Active Substance: ONDANSETRON
  15. TOPIRAMATE [Concomitant]
     Active Substance: TOPIRAMATE
  16. UBRELVY [Concomitant]
     Active Substance: UBROGEPANT
  17. MAGNESIUM [Concomitant]
     Active Substance: MAGNESIUM

REACTIONS (8)
  - Abdominal pain upper [Not Recovered/Not Resolved]
  - Heart rate increased [Not Recovered/Not Resolved]
  - Migraine [Not Recovered/Not Resolved]
  - Dizziness [Not Recovered/Not Resolved]
  - Condition aggravated [Not Recovered/Not Resolved]
  - Constipation [Not Recovered/Not Resolved]
  - Hallucination, auditory [Recovered/Resolved]
  - Off label use [Not Recovered/Not Resolved]

NARRATIVE: CASE EVENT DATE: 20240413
